FAERS Safety Report 7002100-9 (Version None)
Quarter: 2010Q3

REPORT INFORMATION
  Report Type: 
  Country: None (occurrence: None)
  Receive Date: 20100920
  Receipt Date: 20070608
  Transmission Date: 20110219
  Serious: Yes (Other)
  Sender: FDA-Public Use
  Company Number: US-ASTRAZENECA-2006UW21828

PATIENT
  Sex: Female
  Weight: 115.7 kg

DRUGS (10)
  1. SEROQUEL [Suspect]
     Indication: SCHIZOPHRENIA
     Dosage: 100-300 MG
     Route: 048
     Dates: start: 20000818
  2. SEROQUEL [Suspect]
     Indication: DEPRESSION
     Dosage: 100-300 MG
     Route: 048
     Dates: start: 20000818
  3. SEROQUEL [Suspect]
     Indication: BIPOLAR DISORDER
     Dosage: 100-300 MG
     Route: 048
     Dates: start: 20000818
  4. SLIM FAST [Concomitant]
     Indication: WEIGHT CONTROL
  5. DEXATRIM [Concomitant]
     Indication: WEIGHT CONTROL
  6. NAVANE [Concomitant]
  7. THORAZINE [Concomitant]
  8. TRAZODONE HCL [Concomitant]
     Dosage: 100-150 MG
     Route: 048
     Dates: start: 20000818
  9. CELEXA [Concomitant]
     Dosage: 20-40 MG
     Route: 048
     Dates: start: 20010617
  10. METHYLPREDNISOLONE [Concomitant]
     Route: 048
     Dates: start: 20021002

REACTIONS (2)
  - PANCREATITIS [None]
  - TYPE 2 DIABETES MELLITUS [None]
